FAERS Safety Report 4429776-4 (Version None)
Quarter: 2004Q3

REPORT INFORMATION
  Report Type: 
  Country: None (occurrence: None)
  Receive Date: 20040817
  Receipt Date: 20040730
  Transmission Date: 20050211
  Serious: Yes (Other)
  Sender: FDA-Public Use
  Company Number: 2003115934

PATIENT
  Age: 64 Year
  Sex: Male
  Weight: 77.1115 kg

DRUGS (3)
  1. ZANTAC 75 [Suspect]
     Dosage: 1 TAB BID ORAL
     Route: 048
     Dates: end: 20031027
  2. FERROUS GLUCONATE (FERROUS GLUCONATE) [Concomitant]
  3. CENTRUM (VITAMINS NOS MINERALS NOS) [Concomitant]

REACTIONS (3)
  - DIZZINESS [None]
  - LOSS OF CONSCIOUSNESS [None]
  - THERAPEUTIC AGENT TOXICITY [None]
